FAERS Safety Report 9768572 (Version 1)
Quarter: 2013Q4

REPORT INFORMATION
  Report Type: Report from Study
  Country: US (occurrence: US)
  Receive Date: 20131218
  Receipt Date: 20131218
  Transmission Date: 20140711
  Serious: Yes (Death)
  Sender: FDA-Public Use
  Company Number: US-ROCHE-1309440

PATIENT
  Sex: Female
  Weight: 55.84 kg

DRUGS (15)
  1. ABRAXANE [Concomitant]
  2. NEULASTA [Concomitant]
     Route: 065
  3. AVASTIN [Suspect]
     Indication: LUNG NEOPLASM MALIGNANT
     Route: 042
     Dates: start: 20120110
  4. AVASTIN [Suspect]
     Route: 042
  5. TARCEVA [Suspect]
     Indication: LUNG NEOPLASM MALIGNANT
     Route: 065
  6. ALOXI [Concomitant]
     Route: 042
  7. DECADRON [Concomitant]
     Route: 042
  8. ALIMTA [Concomitant]
     Route: 042
  9. DESFERAL [Concomitant]
     Route: 030
  10. HEPARIN [Concomitant]
     Route: 042
  11. CARBOPLATIN [Concomitant]
  12. TAXOL [Concomitant]
  13. ZOMETA [Concomitant]
  14. NAVELBINE [Concomitant]
  15. ERBITUX [Concomitant]

REACTIONS (4)
  - Disease progression [Fatal]
  - Lung disorder [Fatal]
  - Gastrointestinal pain [Unknown]
  - Weight decreased [Unknown]
